FAERS Safety Report 20459911 (Version 2)
Quarter: 2024Q2

REPORT INFORMATION
  Report Type: Spontaneous
  Country: RU (occurrence: None)
  Receive Date: 20220211
  Receipt Date: 20240516
  Transmission Date: 20240716
  Serious: Yes (Other)
  Sender: FDA-Public Use
  Company Number: RU-ROCHE-3020876

PATIENT
  Sex: Male

DRUGS (2)
  1. HEMLIBRA [Suspect]
     Active Substance: EMICIZUMAB-KXWH
     Indication: Factor VIII deficiency
     Dosage: 3 MG/KG ONCE EVERY 2 WEEKS
     Route: 065
     Dates: start: 202004
  2. ANTIHEMOPHILIC FACTOR HUMAN [Concomitant]
     Active Substance: ANTIHEMOPHILIC FACTOR HUMAN
     Dosage: 35-40 IU/KG, 15-20 IU/KG, 1000 IU OF FVIII CONCENTRATE (15 IU/KG) X 2 AT 12-HOUR INTERVALS

REACTIONS (3)
  - Haemarthrosis [Unknown]
  - Post procedural haemorrhage [Unknown]
  - Tooth extraction [Unknown]
